FAERS Safety Report 7636502-4 (Version None)
Quarter: 2011Q3

REPORT INFORMATION
  Report Type: 
  Country: None (occurrence: None)
  Receive Date: 20110726
  Receipt Date: 20110722
  Transmission Date: 20111222
  Serious: Yes (Death, Hospitalization, Other)
  Sender: FDA-Public Use
  Company Number: BR-PFIZER INC-2011159819

PATIENT
  Age: 81 Year
  Sex: Female
  Weight: 64 kg

DRUGS (9)
  1. INSULIN [Concomitant]
     Indication: DIABETES MELLITUS
     Dosage: UNK
     Dates: start: 20070101
  2. RENAGEL [Concomitant]
     Indication: RENAL DISORDER
     Dosage: 500 MG, 1X/DAY
     Dates: start: 20090101
  3. RENAGEL [Concomitant]
     Indication: HAEMODIALYSIS
  4. BISOPROLOL FUMARATE [Concomitant]
     Indication: HYPERTENSION
     Dosage: HALF TABLET, IN THE MORNING, 1X/DAY
     Dates: start: 20090101
  5. ALPRAZOLAM [Concomitant]
     Indication: SLEEP DISORDER
     Dosage: 0.25 MG, 1X/DAY
     Dates: start: 20090101
  6. LIPITOR [Suspect]
     Indication: BLOOD CHOLESTEROL
     Dosage: ONE TABLET, ONCE DAILY
     Route: 048
     Dates: start: 20090101
  7. HEMAX [Concomitant]
     Indication: ANAEMIA
     Dosage: ONE AMPOULE, EVERY 2 DAYS
  8. VALSARTAN [Concomitant]
     Indication: HYPERTENSION
     Dosage: 300 MG, 1X/DAY
     Dates: start: 20090101
  9. VITAMIN D [Concomitant]
     Indication: RENAL DISORDER
     Dosage: ONE TABLET, ONCE DAILY

REACTIONS (7)
  - MULTI-ORGAN FAILURE [None]
  - RENAL FAILURE CHRONIC [None]
  - COMA [None]
  - INFARCTION [None]
  - CEREBROVASCULAR ACCIDENT [None]
  - HAEMODIALYSIS [None]
  - CARDIAC ARREST [None]
